FAERS Safety Report 11513267 (Version 1)
Quarter: 2015Q3

REPORT INFORMATION
  Report Type: Spontaneous
  Country: US (occurrence: US)
  Receive Date: 20150903
  Receipt Date: 20150903
  Transmission Date: 20151125
  Serious: No
  Sender: FDA-Public Use
  Company Number: US-ELI_LILLY_AND_COMPANY-US201210006505

PATIENT
  Sex: Female

DRUGS (3)
  1. KADIAN [Concomitant]
     Active Substance: MORPHINE SULFATE
  2. CYMBALTA [Suspect]
     Active Substance: DULOXETINE HYDROCHLORIDE
     Indication: PAIN
     Dosage: 30 MG, IN THE EVENING
  3. HYDROCODONE [Concomitant]
     Active Substance: HYDROCODONE

REACTIONS (3)
  - Balance disorder [Unknown]
  - Dizziness [Recovered/Resolved]
  - Mydriasis [Recovered/Resolved]
